FAERS Safety Report 19246782 (Version 16)
Quarter: 2024Q2

REPORT INFORMATION
  Report Type: Spontaneous
  Country: US (occurrence: US)
  Receive Date: 20210512
  Receipt Date: 20240626
  Transmission Date: 20240715
  Serious: Yes (Other)
  Sender: FDA-Public Use
  Company Number: US-SA-SAC20210510001364

PATIENT
  Age: 29 Year
  Sex: Male

DRUGS (30)
  1. ALPROLIX [Suspect]
     Active Substance: EFTRENONACOG ALFA
     Indication: Factor IX deficiency
     Dosage: 12000 IU (11400-12600), QOW FOR MAJOR BLEED
     Route: 042
     Dates: start: 201505
  2. ALPROLIX [Suspect]
     Active Substance: EFTRENONACOG ALFA
     Indication: Factor IX deficiency
     Dosage: 12000 IU (11400-12600), QOW FOR MAJOR BLEED
     Route: 042
     Dates: start: 201505
  3. ALPROLIX [Suspect]
     Active Substance: EFTRENONACOG ALFA
     Indication: Prophylaxis
     Dosage: 12000 IU (11400-12600), PRN (DAILY AS NEEDED FOR 2 DAYS FOR MAJOR BLEED)
     Route: 042
     Dates: start: 201505
  4. ALPROLIX [Suspect]
     Active Substance: EFTRENONACOG ALFA
     Indication: Prophylaxis
     Dosage: 12000 IU (11400-12600), PRN (DAILY AS NEEDED FOR 2 DAYS FOR MAJOR BLEED)
     Route: 042
     Dates: start: 201505
  5. ALPROLIX [Suspect]
     Active Substance: EFTRENONACOG ALFA
     Dosage: 10000 U, Q10D
     Route: 042
     Dates: start: 201809
  6. ALPROLIX [Suspect]
     Active Substance: EFTRENONACOG ALFA
     Dosage: 10000 U, Q10D
     Route: 042
     Dates: start: 201809
  7. ALPROLIX [Suspect]
     Active Substance: EFTRENONACOG ALFA
     Dosage: 10000 U, Q10D
     Route: 042
     Dates: start: 20210226
  8. ALPROLIX [Suspect]
     Active Substance: EFTRENONACOG ALFA
     Dosage: 10000 U, Q10D
     Route: 042
     Dates: start: 20210226
  9. ALPROLIX [Suspect]
     Active Substance: EFTRENONACOG ALFA
     Dosage: 12000 U, QOW AND PRN
     Route: 042
     Dates: start: 20210226
  10. ALPROLIX [Suspect]
     Active Substance: EFTRENONACOG ALFA
     Dosage: 12000 U, QOW AND PRN
     Route: 042
     Dates: start: 20210226
  11. ALPROLIX [Suspect]
     Active Substance: EFTRENONACOG ALFA
     Dosage: 10000 U, QOW
     Route: 042
     Dates: start: 20210226
  12. ALPROLIX [Suspect]
     Active Substance: EFTRENONACOG ALFA
     Dosage: 10000 U, QOW
     Route: 042
     Dates: start: 20210226
  13. ALPROLIX [Suspect]
     Active Substance: EFTRENONACOG ALFA
     Dosage: 138000 IU, 1X
     Route: 042
     Dates: start: 20211008, end: 20211008
  14. ALPROLIX [Suspect]
     Active Substance: EFTRENONACOG ALFA
     Dosage: 138000 IU, 1X
     Route: 042
     Dates: start: 20211008, end: 20211008
  15. ALPROLIX [Suspect]
     Active Substance: EFTRENONACOG ALFA
     Dosage: 4365 IU, QOW
     Route: 042
     Dates: start: 20211016
  16. ALPROLIX [Suspect]
     Active Substance: EFTRENONACOG ALFA
     Dosage: 4365 IU, QOW
     Route: 042
     Dates: start: 20211016
  17. ALPROLIX [Suspect]
     Active Substance: EFTRENONACOG ALFA
     Dosage: 6000 IU, 1X
     Route: 042
     Dates: start: 20220101, end: 20220101
  18. ALPROLIX [Suspect]
     Active Substance: EFTRENONACOG ALFA
     Dosage: 6000 IU, 1X
     Route: 042
     Dates: start: 20220101, end: 20220101
  19. ALPROLIX [Suspect]
     Active Substance: EFTRENONACOG ALFA
     Dosage: 12000 IU, QOW
     Route: 042
     Dates: start: 20210225
  20. ALPROLIX [Suspect]
     Active Substance: EFTRENONACOG ALFA
     Dosage: 12000 IU, QOW
     Route: 042
     Dates: start: 20210225
  21. ALPROLIX [Suspect]
     Active Substance: EFTRENONACOG ALFA
     Dosage: 9000 IU, QOW
     Route: 042
  22. ALPROLIX [Suspect]
     Active Substance: EFTRENONACOG ALFA
     Dosage: 9000 IU, QOW
     Route: 042
  23. ALPROLIX [Suspect]
     Active Substance: EFTRENONACOG ALFA
     Dosage: 8000 U, QOW
     Route: 042
  24. ALPROLIX [Suspect]
     Active Substance: EFTRENONACOG ALFA
     Dosage: 8000 U, QOW
     Route: 042
  25. ALPROLIX [Suspect]
     Active Substance: EFTRENONACOG ALFA
     Dosage: 8000 U, PRN
     Route: 042
  26. ALPROLIX [Suspect]
     Active Substance: EFTRENONACOG ALFA
     Dosage: 8000 U, PRN
     Route: 042
  27. ALPROLIX [Suspect]
     Active Substance: EFTRENONACOG ALFA
     Dosage: 3000 U, QOW
     Route: 042
  28. ALPROLIX [Suspect]
     Active Substance: EFTRENONACOG ALFA
     Dosage: 3000 U, QOW
     Route: 042
  29. ALPROLIX [Suspect]
     Active Substance: EFTRENONACOG ALFA
     Dosage: 3000 U, PRN
     Route: 042
  30. ALPROLIX [Suspect]
     Active Substance: EFTRENONACOG ALFA
     Dosage: 3000 U, PRN
     Route: 042

REACTIONS (15)
  - Haemorrhage [Unknown]
  - Traumatic haemorrhage [Not Recovered/Not Resolved]
  - Fall [Unknown]
  - Fall [Unknown]
  - Tooth disorder [Unknown]
  - Feeling abnormal [Unknown]
  - Epistaxis [Recovering/Resolving]
  - Haemorrhage [Unknown]
  - Peripheral swelling [Not Recovered/Not Resolved]
  - Swelling [Unknown]
  - Intentional product misuse [Unknown]
  - Extra dose administered [Unknown]
  - Incorrect dose administered [Unknown]
  - Inappropriate schedule of product administration [Unknown]
  - Treatment noncompliance [Unknown]

NARRATIVE: CASE EVENT DATE: 20210801
